FAERS Safety Report 24413918 (Version 1)
Quarter: 2024Q4

REPORT INFORMATION
  Report Type: Spontaneous
  Country: US (occurrence: US)
  Receive Date: 20241008
  Receipt Date: 20241008
  Transmission Date: 20250115
  Serious: No
  Sender: TG THERAPEUTICS
  Company Number: US-TG THERAPEUTICS INC.-TGT004011

PATIENT

DRUGS (1)
  1. BRIUMVI [Suspect]
     Active Substance: UBLITUXIMAB-XIIY
     Indication: Multiple sclerosis
     Dosage: 150 MILLIGRAM
     Route: 042
     Dates: start: 20240906, end: 20240906

REACTIONS (9)
  - Headache [Unknown]
  - Ocular discomfort [Unknown]
  - Eye pain [Unknown]
  - Hypoaesthesia [Unknown]
  - Confusional state [Unknown]
  - Memory impairment [Unknown]
  - Eyelid ptosis [Unknown]
  - Visual impairment [Unknown]
  - Pain in extremity [Unknown]

NARRATIVE: CASE EVENT DATE: 20240101
